FAERS Safety Report 14001697 (Version 2)
Quarter: 2017Q4

REPORT INFORMATION
  Report Type: Spontaneous
  Country: US (occurrence: US)
  Receive Date: 20170922
  Receipt Date: 20171121
  Transmission Date: 20180321
  Serious: Yes (Hospitalization)
  Sender: FDA-Public Use
  Company Number: US-JNJFOC-20170905589

PATIENT
  Age: 84 Year
  Sex: Female

DRUGS (5)
  1. XARELTO [Suspect]
     Active Substance: RIVAROXABAN
     Indication: THROMBOSIS PROPHYLAXIS
     Route: 048
     Dates: start: 201406, end: 20141031
  2. XARELTO [Suspect]
     Active Substance: RIVAROXABAN
     Indication: CEREBROVASCULAR ACCIDENT PROPHYLAXIS
     Route: 048
     Dates: start: 201406, end: 20141031
  3. ASPIRIN. [Suspect]
     Active Substance: ASPIRIN
     Indication: CORONARY ARTERY DISEASE
     Route: 048
     Dates: end: 20141031
  4. XARELTO [Suspect]
     Active Substance: RIVAROXABAN
     Indication: ATRIAL FIBRILLATION
     Route: 048
     Dates: start: 201406, end: 20141031
  5. BRILINTA [Suspect]
     Active Substance: TICAGRELOR
     Indication: CORONARY ARTERY DISEASE
     Route: 065
     Dates: end: 20141031

REACTIONS (2)
  - Lower gastrointestinal haemorrhage [Recovering/Resolving]
  - Post procedural haemorrhage [Recovering/Resolving]

NARRATIVE: CASE EVENT DATE: 20140903
